FAERS Safety Report 10006927 (Version 2)
Quarter: 2015Q3

REPORT INFORMATION
  Report Type: Spontaneous
  Country: US (occurrence: US)
  Receive Date: 20140313
  Receipt Date: 20150813
  Transmission Date: 20151125
  Serious: No
  Sender: FDA-Public Use
  Company Number: US-GILEAD-2013-0067315

PATIENT
  Age: 51 Year
  Sex: Female

DRUGS (9)
  1. CODEINE/PROMETHAZINE [Concomitant]
     Active Substance: CODEINE\PROMETHAZINE
  2. QUERCETIN [Concomitant]
     Active Substance: QUERCETIN
  3. IMURAN [Concomitant]
     Active Substance: AZATHIOPRINE
  4. ATROVENT [Concomitant]
     Active Substance: IPRATROPIUM BROMIDE
  5. PREDNISONE. [Concomitant]
     Active Substance: PREDNISONE
  6. VITAMIN D3 [Concomitant]
     Active Substance: CHOLECALCIFEROL
  7. CALCIUM [Concomitant]
     Active Substance: CALCIUM
  8. LETAIRIS [Suspect]
     Active Substance: AMBRISENTAN
     Indication: PRODUCT USED FOR UNKNOWN INDICATION
     Dosage: 5 MG, QD
     Route: 048
     Dates: start: 20120824, end: 20121213
  9. FOSAMAX [Concomitant]
     Active Substance: ALENDRONATE SODIUM

REACTIONS (1)
  - Drug ineffective [Unknown]
